FAERS Safety Report 6997319-7 (Version None)
Quarter: 2010Q3

REPORT INFORMATION
  Report Type: 
  Country: None (occurrence: None)
  Receive Date: 20100918
  Receipt Date: 20091006
  Transmission Date: 20110219
  Serious: No
  Sender: FDA-Public Use
  Company Number: US-WYE-H11448109

PATIENT
  Sex: Male
  Weight: 94.43 kg

DRUGS (10)
  1. EFFEXOR XR [Suspect]
     Indication: DEPRESSION
     Route: 048
     Dates: start: 20090923, end: 20090924
  2. EFFEXOR XR [Suspect]
     Indication: POST-TRAUMATIC STRESS DISORDER
     Route: 048
     Dates: start: 20090925
  3. OMEPRAZOLE [Concomitant]
  4. SYNTHROID [Concomitant]
  5. TOPAMAX [Concomitant]
  6. PRAZOSIN HCL [Concomitant]
  7. DICYCLOMINE HYDROCHLORIDE [Concomitant]
  8. SIMVASTATIN [Concomitant]
  9. DILANTIN [Concomitant]
  10. SULCRATE [Concomitant]

REACTIONS (7)
  - BALANCE DISORDER [None]
  - DIZZINESS [None]
  - EUPHORIC MOOD [None]
  - HEADACHE [None]
  - HYPERHIDROSIS [None]
  - NAUSEA [None]
  - UNEVALUABLE EVENT [None]
